FAERS Safety Report 7383663-0 (Version None)
Quarter: 2011Q1

REPORT INFORMATION
  Report Type: 
  Country: None (occurrence: None)
  Receive Date: 20110325
  Receipt Date: 20110325
  Transmission Date: 20110831
  Serious: Yes (Death)
  Sender: FDA-Public Use
  Company Number: None

PATIENT
  Age: 34 Year
  Sex: Male
  Weight: 79 kg

DRUGS (1)
  1. INFLIXIMAB [Suspect]
     Indication: CROHN'S DISEASE
     Dosage: 500 MG OTHER IV
     Route: 042
     Dates: start: 20110307, end: 20110307

REACTIONS (4)
  - DYSPNOEA [None]
  - INFUSION RELATED REACTION [None]
  - RASH [None]
  - ANGINA PECTORIS [None]
